FAERS Safety Report 10643261 (Version 1)
Quarter: 2014Q4

REPORT INFORMATION
  Report Type: Spontaneous
  Country: US (occurrence: None)
  Receive Date: 20141209
  Receipt Date: 20141209
  Transmission Date: 20150529
  Serious: No
  Sender: FDA-Public Use
  Company Number: None

PATIENT
  Age: 54 Year
  Sex: Male

DRUGS (1)
  1. HUMIRA [Suspect]
     Active Substance: ADALIMUMAB
     Indication: RHEUMATOID ARTHRITIS
     Route: 058
     Dates: start: 20140424

REACTIONS (4)
  - Alopecia [None]
  - Burning sensation [None]
  - Fatigue [None]
  - Musculoskeletal pain [None]

NARRATIVE: CASE EVENT DATE: 20141208
